FAERS Safety Report 24834660 (Version 1)
Quarter: 2025Q1

REPORT INFORMATION
  Report Type: Spontaneous
  Country: US (occurrence: None)
  Receive Date: 20250110
  Receipt Date: 20250110
  Transmission Date: 20250408
  Serious: Yes (Death)
  Sender: FDA-CTU
  Company Number: None

PATIENT
  Age: 70 Year
  Sex: Male

DRUGS (11)
  1. TESTOPEL [Suspect]
     Active Substance: TESTOSTERONE
     Indication: Testicular failure
     Route: 058
     Dates: start: 20240828
  2. ASPIRIN CHW 81MG [Concomitant]
  3. CARAFATE TAB 1GM [Concomitant]
  4. COREG TAB 3.125MG [Concomitant]
  5. COSENTYX INJ 150MG/ML [Concomitant]
  6. EFFIENT TAB 10MG [Concomitant]
  7. FENOFIBRATE TAB 54MG [Concomitant]
  8. FENTANYL DIS 12MCG/HR [Concomitant]
  9. LYRICA CAP 300MG [Concomitant]
  10. METFORMIN [Concomitant]
     Active Substance: METFORMIN HYDROCHLORIDE
  11. MONTELUKAST SODIUM [Concomitant]
     Active Substance: MONTELUKAST SODIUM

REACTIONS (1)
  - Death [None]

NARRATIVE: CASE EVENT DATE: 20241210
